FAERS Safety Report 8259182-6 (Version None)
Quarter: 2012Q2

REPORT INFORMATION
  Report Type: 
  Country: None (occurrence: None)
  Receive Date: 20120403
  Receipt Date: 20120403
  Transmission Date: 20120825
  Serious: No
  Sender: FDA-Public Use
  Company Number: None

PATIENT
  Sex: Male
  Weight: 86.1834 kg

DRUGS (1)
  1. SKIN TIGHT-EXTRA STRENGTH [Suspect]
     Indication: INGROWN HAIR
     Dates: start: 20111105

REACTIONS (4)
  - EYE IRRITATION [None]
  - EYE PRURITUS [None]
  - EYE HAEMORRHAGE [None]
  - VISION BLURRED [None]
